FAERS Safety Report 15562911 (Version 1)
Quarter: 2018Q4

REPORT INFORMATION
  Report Type: Spontaneous
  Country: FR (occurrence: FR)
  Receive Date: 20181029
  Receipt Date: 20181029
  Transmission Date: 20190205
  Serious: Yes (Hospitalization)
  Sender: FDA-Public Use
  Company Number: FR-ANIPHARMA-2018-FR-000171

PATIENT
  Age: 51 Year
  Sex: Female

DRUGS (6)
  1. SOLUPRED [PREDNISOLONE METASULFOBENZOATE SODIUM] [Concomitant]
     Active Substance: PREDNISOLONE SODIUM METAZOATE
     Route: 048
     Dates: start: 20170914, end: 20171005
  2. KEPPRA [Concomitant]
     Active Substance: LEVETIRACETAM
     Route: 048
  3. CANDESARTAN CILEXETIL. [Suspect]
     Active Substance: CANDESARTAN CILEXETIL
     Indication: HYPERTENSION
     Dosage: 40MG DAILY
     Route: 048
     Dates: start: 20171018, end: 20171025
  4. LEVOTHYROX [Concomitant]
     Active Substance: LEVOTHYROXINE
     Route: 048
  5. CABOZANTINIB [Suspect]
     Active Substance: CABOZANTINIB
     Dosage: 60 MG DAILY / 40 MG DAILY / 1 DF DAILY
     Dates: start: 20171019, end: 20171025
  6. EUPANTOL [Suspect]
     Active Substance: PANTOPRAZOLE SODIUM
     Dosage: 40 MG UNK / 60 MG DAILY
     Route: 048
     Dates: start: 20171012, end: 20171025

REACTIONS (2)
  - Cholestasis [Recovering/Resolving]
  - Cell death [Recovering/Resolving]

NARRATIVE: CASE EVENT DATE: 20171025
